FAERS Safety Report 8668208 (Version 5)
Quarter: 2012Q4

REPORT INFORMATION
  Report Type: Report from Study
  Country: US (occurrence: US)
  Receive Date: 20120717
  Receipt Date: 20121023
  Transmission Date: 20130627
  Serious: Yes (Other)
  Sender: FDA-Public Use
  Company Number: US-ROCHE-1068259

PATIENT
  Sex: Male

DRUGS (6)
  1. PEG-INTERFERON ALFA 2A [Suspect]
     Indication: HEPATITIS C
     Route: 065
     Dates: start: 20120220
  2. PEG-INTERFERON ALFA 2A [Suspect]
     Route: 065
     Dates: start: 20120223
  3. RIBAVIRIN [Suspect]
     Indication: HEPATITIS C
     Route: 065
     Dates: start: 20120220
  4. RIBAVIRIN [Suspect]
     Route: 065
     Dates: start: 20120223
  5. RIBAVIRIN [Suspect]
     Dosage: divided doses
     Route: 065
  6. BOCEPREVIR [Suspect]
     Indication: HEPATITIS C
     Route: 065

REACTIONS (32)
  - Faeces discoloured [Unknown]
  - Self-injurious ideation [Unknown]
  - Abdominal pain [Unknown]
  - Ulcer haemorrhage [Unknown]
  - Virologic failure [Unknown]
  - Type 2 diabetes mellitus [Unknown]
  - Costochondritis [Unknown]
  - Pain [Unknown]
  - Emotional distress [Unknown]
  - Depression [Unknown]
  - Anger [Unknown]
  - Irritability [Unknown]
  - Insomnia [Unknown]
  - Weight decreased [Unknown]
  - Tearfulness [Unknown]
  - Agitation [Unknown]
  - Mood swings [Unknown]
  - Oropharyngeal pain [Not Recovered/Not Resolved]
  - Pain [Not Recovered/Not Resolved]
  - Tinnitus [Not Recovered/Not Resolved]
  - Pyrexia [Not Recovered/Not Resolved]
  - Cystitis [Unknown]
  - Nausea [Unknown]
  - Vomiting [Unknown]
  - Pain [Unknown]
  - White blood cell count decreased [Unknown]
  - Dysuria [Unknown]
  - Dysuria [Unknown]
  - Fatigue [Recovering/Resolving]
  - Anaemia [Recovering/Resolving]
  - Feeling abnormal [Unknown]
  - Gastric disorder [Unknown]
